FAERS Safety Report 12311863 (Version 1)
Quarter: 2016Q2

REPORT INFORMATION
  Report Type: Report from Study
  Country: US (occurrence: US)
  Receive Date: 20160427
  Receipt Date: 20160427
  Transmission Date: 20160815
  Serious: Yes (Hospitalization, Other)
  Sender: FDA-Public Use
  Company Number: US-ABBVIE-16K-163-1611064-00

PATIENT
  Age: 41 Year
  Sex: Female

DRUGS (1)
  1. HUMIRA [Suspect]
     Active Substance: ADALIMUMAB
     Indication: PSORIATIC ARTHROPATHY
     Route: 058
     Dates: start: 201411

REACTIONS (5)
  - Hysterectomy [Unknown]
  - Fistula [Unknown]
  - Fistula [Unknown]
  - Inappropriate schedule of drug administration [Unknown]
  - Bladder operation [Unknown]

NARRATIVE: CASE EVENT DATE: 2016
